FAERS Safety Report 23310593 (Version 1)
Quarter: 2023Q4

REPORT INFORMATION
  Report Type: Spontaneous
  Country: TR (occurrence: TR)
  Receive Date: 20231218
  Receipt Date: 20231218
  Transmission Date: 20240109
  Serious: Yes (Other)
  Sender: FDA-Public Use
  Company Number: TR-002147023-NVSC2023TR266504

PATIENT
  Age: 71 Year
  Sex: Female

DRUGS (1)
  1. TRILEPTAL [Suspect]
     Active Substance: OXCARBAZEPINE
     Indication: Neuralgia
     Dosage: 1 DOSAGE FORM, Q6H (FOR 10 YEARS)
     Route: 048

REACTIONS (6)
  - Paralysis [Unknown]
  - Electric shock sensation [Unknown]
  - Pain [Unknown]
  - Mastication disorder [Unknown]
  - Product availability issue [Unknown]
  - Off label use [Unknown]
